FAERS Safety Report 24212772 (Version 1)
Quarter: 2024Q3

REPORT INFORMATION
  Report Type: Spontaneous
  Country: GB (occurrence: GB)
  Receive Date: 20240815
  Receipt Date: 20240815
  Transmission Date: 20241017
  Serious: Yes (Life-Threatening, Hospitalization, Disabling, Other)
  Sender: TAKEDA
  Company Number: None

PATIENT
  Age: 40 Year
  Sex: Female

DRUGS (6)
  1. VORTIOXETINE [Suspect]
     Active Substance: VORTIOXETINE HYDROBROMIDE
     Indication: Anxiety disorder
     Dosage: UNK
     Route: 065
     Dates: start: 20240113, end: 20240808
  2. PRAZOSIN [Concomitant]
     Active Substance: PRAZOSIN
     Indication: Adverse drug reaction
     Dosage: UNK
     Dates: start: 20231227, end: 20240808
  3. DIHYDROCODEINE [Concomitant]
     Active Substance: DIHYDROCODEINE
     Indication: Gastrointestinal pain
     Dosage: UNK
  4. MORPHINE SULFATE [Concomitant]
     Active Substance: MORPHINE SULFATE
     Indication: Gastrointestinal pain
     Dosage: UNK
  5. DIAZEPAM [Concomitant]
     Active Substance: DIAZEPAM
     Indication: Adverse drug reaction
     Dosage: UNK
  6. ZOLPIDEM [Concomitant]
     Active Substance: ZOLPIDEM TARTRATE
     Indication: Insomnia
     Dosage: UNK

REACTIONS (15)
  - Suicidal ideation [Recovered/Resolved]
  - Fatigue [Recovering/Resolving]
  - Panic attack [Recovering/Resolving]
  - Weight decreased [Recovering/Resolving]
  - Rash pruritic [Recovering/Resolving]
  - Nightmare [Not Recovered/Not Resolved]
  - Self-destructive behaviour [Recovering/Resolving]
  - Insomnia [Recovered/Resolved]
  - Social fear [Not Recovered/Not Resolved]
  - Gastrointestinal pain [Not Recovered/Not Resolved]
  - Alopecia [Not Recovered/Not Resolved]
  - Arthralgia [Unknown]
  - Nausea [Unknown]
  - Vomiting [Unknown]
  - Product use in unapproved indication [Unknown]

NARRATIVE: CASE EVENT DATE: 20240113
